FAERS Safety Report 6885297-0 (Version None)
Quarter: 2010Q3

REPORT INFORMATION
  Report Type: 
  Country: None (occurrence: None)
  Receive Date: 20100729
  Receipt Date: 20100729
  Transmission Date: 20110219
  Serious: Yes (Hospitalization)
  Sender: FDA-Public Use
  Company Number: None

PATIENT
  Age: 52 Year
  Sex: Female
  Weight: 82 kg

DRUGS (2)
  1. SULFAMETHOXAZOLE AND TRIMETHOPRIM [Suspect]
     Indication: URINARY TRACT INFECTION
     Dosage: 2 TAB BID PO
     Route: 048
     Dates: start: 20100618, end: 20100628
  2. RIFAMPIN [Suspect]
     Indication: URINARY TRACT INFECTION
     Dosage: 300 MG BID PO
     Route: 048
     Dates: start: 20100618, end: 20100628

REACTIONS (5)
  - NAUSEA [None]
  - PETECHIAE [None]
  - RENAL FAILURE ACUTE [None]
  - THROMBOCYTOPENIA [None]
  - VOMITING [None]
